FAERS Safety Report 20055992 (Version 1)
Quarter: 2021Q4

REPORT INFORMATION
  Report Type: Spontaneous
  Country: US (occurrence: None)
  Receive Date: 20211111
  Receipt Date: 20211111
  Transmission Date: 20220303
  Serious: Yes (Other)
  Sender: FDA-Public Use
  Company Number: US-FARMAPROD-202110-1964

PATIENT
  Sex: Female

DRUGS (11)
  1. OXERVATE [Suspect]
     Active Substance: CENEGERMIN-BKBJ
     Indication: Neurotrophic keratopathy
     Route: 047
     Dates: start: 20211005
  2. LEVOTHYROXINE [Concomitant]
     Active Substance: LEVOTHYROXINE
  3. LINZESS [Concomitant]
     Active Substance: LINACLOTIDE
  4. PANTOPRAZOLE SODIUM [Concomitant]
     Active Substance: PANTOPRAZOLE SODIUM
  5. PLAQUENIL [Concomitant]
     Active Substance: HYDROXYCHLOROQUINE SULFATE
  6. SULFASALAZINE [Concomitant]
     Active Substance: SULFASALAZINE
  7. NITROGLYCERIN [Concomitant]
     Active Substance: NITROGLYCERIN
  8. LOVASTATIN [Concomitant]
     Active Substance: LOVASTATIN
  9. COREG CR [Concomitant]
     Active Substance: CARVEDILOL PHOSPHATE
  10. METHOTREXATE [Concomitant]
     Active Substance: METHOTREXATE
  11. BENICAR [Concomitant]
     Active Substance: OLMESARTAN MEDOXOMIL

REACTIONS (5)
  - Wrist fracture [Unknown]
  - Wrist surgery [Unknown]
  - Eye pain [Unknown]
  - Eye swelling [Unknown]
  - Eye irritation [Unknown]
